FAERS Safety Report 4722884-X (Version None)
Quarter: 2005Q3

REPORT INFORMATION
  Report Type: 
  Country: None (occurrence: None)
  Receive Date: 20050722
  Receipt Date: 20050708
  Transmission Date: 20060218
  Serious: Yes (Hospitalization)
  Sender: FDA-Public Use
  Company Number: PHNU2005DE02505

PATIENT
  Age: 17 Year
  Sex: Male

DRUGS (1)
  1. METHYLPHENIDATE HCL [Suspect]
     Dosage: 30 MG/DAY
     Route: 048

REACTIONS (1)
  - SPLENIC VEIN THROMBOSIS [None]
